FAERS Safety Report 11098719 (Version 4)
Quarter: 2015Q3

REPORT INFORMATION
  Report Type: Report from Study
  Country: HU (occurrence: HU)
  Receive Date: 20150507
  Receipt Date: 20150818
  Transmission Date: 20151125
  Serious: Yes (Death, Other)
  Sender: FDA-Public Use
  Company Number: PHHY2015HU053117

PATIENT
  Age: 55 Year
  Sex: Male

DRUGS (4)
  1. TAMSUDIL [Concomitant]
     Indication: PRODUCT USED FOR UNKNOWN INDICATION
     Dosage: 1 DF, QD
     Route: 065
  2. BERODUAL N [Concomitant]
     Active Substance: FENOTEROL HYDROBROMIDE\IPRATROPIUM BROMIDE
     Indication: PRODUCT USED FOR UNKNOWN INDICATION
     Dosage: UNK
     Route: 065
  3. VIDOTIN [Concomitant]
     Indication: HYPERTENSION
     Route: 065
  4. ULTIBRO BREEZHALER [Suspect]
     Active Substance: GLYCOPYRRONIUM\INDACATEROL
     Indication: CHRONIC OBSTRUCTIVE PULMONARY DISEASE
     Dosage: 1 DF, QD
     Route: 055
     Dates: start: 20150415

REACTIONS (9)
  - Arteriosclerosis coronary artery [Fatal]
  - Cough [Unknown]
  - Throat irritation [Unknown]
  - Apnoea [Unknown]
  - Coronary artery occlusion [Fatal]
  - Coronary artery thrombosis [Fatal]
  - Pollakiuria [Unknown]
  - Dysuria [Unknown]
  - Myalgia [Unknown]

NARRATIVE: CASE EVENT DATE: 201504
